FAERS Safety Report 4942199-4 (Version None)
Quarter: 2006Q1

REPORT INFORMATION
  Report Type: 
  Country: None (occurrence: None)
  Receive Date: 20060313
  Receipt Date: 20050907
  Transmission Date: 20060701
  Serious: No
  Sender: FDA-Public Use
  Company Number: US-GLAXOSMITHKLINE-A0573266A

PATIENT
  Age: 53 Year
  Sex: Female

DRUGS (1)
  1. NICORETTE [Suspect]
     Dates: start: 20050827

REACTIONS (4)
  - DYSPNOEA [None]
  - EPISTAXIS [None]
  - HICCUPS [None]
  - IRRITABILITY [None]
